FAERS Safety Report 5286026-7 (Version None)
Quarter: 2007Q2

REPORT INFORMATION
  Report Type: 
  Country: None (occurrence: None)
  Receive Date: 20070404
  Receipt Date: 20070322
  Transmission Date: 20071010
  Serious: Yes (Hospitalization)
  Sender: FDA-Public Use
  Company Number: HQWYE854121DEC06

PATIENT
  Sex: Female
  Weight: 63 kg

DRUGS (4)
  1. ENBREL [Suspect]
     Indication: RHEUMATOID ARTHRITIS
     Route: 058
     Dates: start: 20060810, end: 20061201
  2. PREDONINE [Suspect]
     Indication: RHEUMATOID ARTHRITIS
     Route: 048
     Dates: start: 20050304
  3. ASPARA-CA [Concomitant]
     Indication: OSTEOPOROSIS
     Route: 048
     Dates: start: 20041105
  4. GASTER [Concomitant]
     Route: 048
     Dates: end: 20061214

REACTIONS (1)
  - CELLULITIS STAPHYLOCOCCAL [None]
